FAERS Safety Report 7730193-X (Version None)
Quarter: 2011Q3

REPORT INFORMATION
  Report Type: 
  Country: None (occurrence: None)
  Receive Date: 20110906
  Receipt Date: 20110817
  Transmission Date: 20111222
  Serious: No
  Sender: FDA-Public Use
  Company Number: US-B.I. PHARMACEUTICALS,INC./RIDGEFIELD-2011-BP-20235BP

PATIENT
  Sex: Female

DRUGS (10)
  1. DILTIAZEM [Concomitant]
     Indication: ATRIAL FIBRILLATION
     Dosage: 240 MG
     Route: 048
  2. VIT D [Concomitant]
     Indication: OSTEOPOROSIS
     Route: 048
  3. ARTHRO 7 [Concomitant]
     Indication: ARTHRITIS
     Route: 048
  4. ACTINOL [Concomitant]
     Indication: OSTEOPOROSIS
     Route: 048
  5. PRADAXA [Suspect]
     Dates: start: 20110601
  6. SYNTHROID [Concomitant]
     Indication: HYPOTHYROIDISM
     Route: 048
  7. CITRACAL [Concomitant]
     Indication: OSTEOPOROSIS
     Route: 048
  8. PRADAXA [Suspect]
     Indication: ATRIAL FIBRILLATION
     Dosage: 300 MG
     Route: 048
     Dates: start: 20100101
  9. PRADAXA [Suspect]
  10. ACTINOL [Concomitant]
     Indication: OSTEOPENIA

REACTIONS (5)
  - PRURITUS GENERALISED [None]
  - DYSPEPSIA [None]
  - ABDOMINAL PAIN [None]
  - MUSCLE SPASMS [None]
  - PRURITUS [None]
